FAERS Safety Report 8921971 (Version 1)
Quarter: 2012Q4

REPORT INFORMATION
  Report Type: Spontaneous
  Country: US (occurrence: None)
  Receive Date: 20121119
  Receipt Date: 20121119
  Transmission Date: 20130627
  Serious: Yes (Hospitalization)
  Sender: FDA-Public Use
  Company Number: None

PATIENT
  Age: 38 Year
  Sex: Female
  Weight: 45.36 kg

DRUGS (1)
  1. TORADOL [Suspect]
     Indication: HYSTERECTOMY
     Route: 042
     Dates: start: 20120815, end: 20120815

REACTIONS (9)
  - Bacteriuria [None]
  - Back pain [None]
  - Abdominal pain [None]
  - Pyrexia [None]
  - Chills [None]
  - Nausea [None]
  - Vomiting [None]
  - Abdominal pain lower [None]
  - Infection [None]
